FAERS Safety Report 18159825 (Version 2)
Quarter: 2022Q2

REPORT INFORMATION
  Report Type: Spontaneous
  Country: AU (occurrence: AU)
  Receive Date: 20200817
  Receipt Date: 20220628
  Transmission Date: 20220720
  Serious: Yes (Other)
  Sender: FDA-Public Use
  Company Number: AU-GSKCCFAPAC-CASE-01006512_AE-32554

PATIENT

DRUGS (1)
  1. NUCALA [Suspect]
     Active Substance: MEPOLIZUMAB
     Indication: Product used for unknown indication
     Dosage: UNK
     Dates: start: 202007

REACTIONS (18)
  - Anaphylactic reaction [Unknown]
  - Nausea [Unknown]
  - Skin fissures [Unknown]
  - Toothache [Unknown]
  - Oral pain [Unknown]
  - Fatigue [Unknown]
  - Bladder pain [Unknown]
  - Muscle spasms [Unknown]
  - Arthralgia [Unknown]
  - Respiration abnormal [Unknown]
  - Snoring [Unknown]
  - Dyspnoea [Unknown]
  - Suffocation feeling [Unknown]
  - Oropharyngeal pain [Unknown]
  - Influenza like illness [Unknown]
  - Sensation of foreign body [Unknown]
  - Swelling of eyelid [Recovered/Resolved]
  - Hypersomnia [Unknown]

NARRATIVE: CASE EVENT DATE: 20200701
